FAERS Safety Report 16123716 (Version 1)
Quarter: 2019Q1

REPORT INFORMATION
  Report Type: Spontaneous
  Country: FR (occurrence: FR)
  Receive Date: 20190327
  Receipt Date: 20190327
  Transmission Date: 20190418
  Serious: Yes (Other)
  Sender: FDA-Public Use
  Company Number: FR-TEVA-2019-FR-1030266

PATIENT
  Age: 87 Year
  Sex: Female

DRUGS (1)
  1. MEMANTINE (CHLORHYDRATE DE) [Suspect]
     Active Substance: MEMANTINE HYDROCHLORIDE
     Indication: DEMENTIA ALZHEIMER^S TYPE
     Dosage: 20 MILLIGRAM DAILY;
     Route: 048
     Dates: start: 201601, end: 20190115

REACTIONS (2)
  - Condition aggravated [Not Recovered/Not Resolved]
  - Therapy cessation [Not Recovered/Not Resolved]

NARRATIVE: CASE EVENT DATE: 20190115
